FAERS Safety Report 19401569 (Version 3)
Quarter: 2021Q3

REPORT INFORMATION
  Report Type: Spontaneous
  Country: US (occurrence: US)
  Receive Date: 20210611
  Receipt Date: 20210702
  Transmission Date: 20211014
  Serious: Yes (Hospitalization)
  Sender: FDA-Public Use
  Company Number: US-MTPC-MTDA2021-0014166

PATIENT
  Sex: Male

DRUGS (1)
  1. RADICAVA [Suspect]
     Active Substance: EDARAVONE
     Indication: AMYOTROPHIC LATERAL SCLEROSIS
     Dosage: 60 MILLIGRAM AS DIRECTED
     Route: 065
     Dates: start: 20200817

REACTIONS (4)
  - Mechanical ventilation complication [Recovering/Resolving]
  - Aphasia [Unknown]
  - Energy increased [Unknown]
  - Muscular weakness [Unknown]
